FAERS Safety Report 13254206 (Version 1)
Quarter: 2017Q1

REPORT INFORMATION
  Report Type: Spontaneous
  Country: FR (occurrence: FR)
  Receive Date: 20170221
  Receipt Date: 20170221
  Transmission Date: 20170428
  Serious: Yes (Death)
  Sender: FDA-Public Use
  Company Number: PHHY2013FR099709

PATIENT
  Age: 63 Year
  Sex: Male

DRUGS (12)
  1. SIMVASTATINE ARROW [Suspect]
     Active Substance: SIMVASTATIN
     Indication: DYSLIPIDAEMIA
     Dosage: 20 MG, QD
     Route: 048
     Dates: end: 20130724
  2. CALCIUM LEVOFOLINATE [Concomitant]
     Active Substance: LEVOLEUCOVORIN CALCIUM
     Dosage: UNK UKN, UNK
  3. NEBILOX [Suspect]
     Active Substance: NEBIVOLOL HYDROCHLORIDE
     Dosage: 5 MG, QD
     Route: 048
     Dates: end: 20130724
  4. ONDANSETRON [Concomitant]
     Active Substance: ONDANSETRON
  5. FLUOROURACIL PFIZER [Suspect]
     Active Substance: FLUOROURACIL
     Indication: SQUAMOUS CELL CARCINOMA
     Dosage: 650MG AS BOLUS AND THEN 1600MG, QD
     Route: 042
     Dates: start: 20130717, end: 20130718
  6. CISPLATIN. [Suspect]
     Active Substance: CISPLATIN
     Indication: SQUAMOUS CELL CARCINOMA
     Dosage: 65 MG, QD
     Route: 042
     Dates: start: 20130717, end: 20130718
  7. KARDEGIC [Suspect]
     Active Substance: ASPIRIN LYSINE
     Dosage: 75 MG, QD
     Route: 048
  8. DUROGESIC [Suspect]
     Active Substance: FENTANYL
     Indication: ANALGESIC INTERVENTION SUPPORTIVE THERAPY
     Route: 062
     Dates: end: 20130724
  9. SOLU-MEDROL [Concomitant]
     Active Substance: METHYLPREDNISOLONE SODIUM SUCCINATE
     Dosage: UNK UKN, UNK
  10. SINTROM [Suspect]
     Active Substance: ACENOCOUMAROL
     Indication: SQUAMOUS CELL CARCINOMA
     Route: 048
     Dates: end: 20130724
  11. DOCETAXEL EBEWE [Suspect]
     Active Substance: DOCETAXEL
     Indication: SQUAMOUS CELL CARCINOMA
     Dosage: 64 MG, QD
     Route: 042
     Dates: start: 20130717, end: 20130718
  12. EMEND [Concomitant]
     Active Substance: APREPITANT

REACTIONS (11)
  - General physical health deterioration [Fatal]
  - Abdominal pain upper [Fatal]
  - Hypothermia [Fatal]
  - Rectal haemorrhage [Fatal]
  - Lymphopenia [Fatal]
  - Enterobacter sepsis [Fatal]
  - Enterocolitis haemorrhagic [Fatal]
  - Enterobacter infection [Fatal]
  - Neutropenia [Fatal]
  - Leukopenia [Fatal]
  - Vomiting [Fatal]

NARRATIVE: CASE EVENT DATE: 20130721
